FAERS Safety Report 4694766-3 (Version None)
Quarter: 2005Q2

REPORT INFORMATION
  Report Type: 
  Country: None (occurrence: None)
  Receive Date: 20050620
  Receipt Date: 20010917
  Transmission Date: 20051028
  Serious: Yes (Hospitalization, Other)
  Sender: FDA-Public Use
  Company Number: 10991321

PATIENT
  Age: 1 Month
  Sex: Female
  Weight: 2 kg

DRUGS (8)
  1. ZERIT [Suspect]
     Dosage: EXPOSURE TO WEEK 30 OF GESTATION.
     Route: 064
     Dates: start: 20000128, end: 20000323
  2. RETROVIR [Suspect]
     Dosage: TO GEST. WEEK 30, THEN 200 MG/20 MLS DURING DELIVERY 3/23/2000
     Route: 064
     Dates: end: 20000128
  3. EPIVIR [Suspect]
     Dosage: -FROM 30TH GESTATIONAL WEEK.
     Route: 064
     Dates: start: 20000128, end: 20000323
  4. VIRAMUNE [Suspect]
     Dosage: -FROM 30TH GESTATIONAL WEEK.
     Route: 064
     Dates: start: 20000128, end: 20000323
  5. RETROVIR [Suspect]
     Indication: PROPHYLAXIS
     Route: 048
     Dates: start: 20000323, end: 20000504
  6. VIRAMUNE [Suspect]
     Indication: PROPHYLAXIS
     Route: 048
     Dates: start: 20000325, end: 20000325
  7. LEDERFOLINE [Concomitant]
     Route: 064
  8. GYNOPEVARYL [Concomitant]
     Route: 064

REACTIONS (13)
  - ANAEMIA MACROCYTIC [None]
  - BLOOD CREATINE PHOSPHOKINASE INCREASED [None]
  - DEVELOPMENTAL DELAY [None]
  - GAIT DISTURBANCE [None]
  - GRANULOCYTOPENIA [None]
  - HAEMANGIOMA [None]
  - HYPERCHOLESTEROLAEMIA [None]
  - HYPERLACTACIDAEMIA [None]
  - HYPERTRIGLYCERIDAEMIA [None]
  - HYPOTONIA [None]
  - NEUTROPENIA [None]
  - PREGNANCY [None]
  - THROMBOCYTHAEMIA [None]
